FAERS Safety Report 4773611-1 (Version None)
Quarter: 2005Q3

REPORT INFORMATION
  Report Type: 
  Country: None (occurrence: None)
  Receive Date: 20050914
  Receipt Date: 20050812
  Transmission Date: 20060218
  Serious: Yes (Other)
  Sender: FDA-Public Use
  Company Number: 414213

PATIENT
  Age: 47 Year
  Sex: Female
  Weight: 66.7 kg

DRUGS (4)
  1. BONIVA [Suspect]
     Indication: OSTEOPOROSIS
     Dosage: 150 MG 1 PER MONTH ORAL
     Route: 048
     Dates: start: 20050523
  2. KEPPRA [Suspect]
     Indication: CONVULSION
     Dates: start: 20010615
  3. ZONEGRAN [Suspect]
     Indication: CONVULSION
     Dates: start: 20010615
  4. DETROL [Concomitant]

REACTIONS (5)
  - ARTHRALGIA [None]
  - DRUG INTERACTION [None]
  - MUSCLE SPASMS [None]
  - MUSCULOSKELETAL STIFFNESS [None]
  - TREMOR [None]
